FAERS Safety Report 4355042-1 (Version None)
Quarter: 2004Q2

REPORT INFORMATION
  Report Type: 
  Country: None (occurrence: None)
  Receive Date: 20040504
  Receipt Date: 20040423
  Transmission Date: 20050107
  Serious: Yes (Hospitalization)
  Sender: FDA-Public Use
  Company Number: 2004UW08247

PATIENT
  Age: 83 Year
  Sex: Female

DRUGS (5)
  1. CRESTOR [Suspect]
     Indication: HYPERLIPIDAEMIA
     Dosage: 10 MG PO
     Route: 048
     Dates: start: 20040101
  2. ACE INHIBITOR [Concomitant]
  3. CALCIUM CHANNEL BLOCKER [Concomitant]
  4. DIURETIC [Concomitant]
  5. ANTIDEPRESSANT [Concomitant]

REACTIONS (5)
  - BLOOD CREATINE PHOSPHOKINASE INCREASED [None]
  - BLOOD SODIUM INCREASED [None]
  - NAUSEA [None]
  - PROCEDURAL COMPLICATION [None]
  - VOMITING [None]
